FAERS Safety Report 9192753 (Version 2)
Quarter: 2013Q2

REPORT INFORMATION
  Report Type: Spontaneous
  Country: FR (occurrence: FR)
  Receive Date: 20130327
  Receipt Date: 20130507
  Transmission Date: 20140414
  Serious: Yes (Hospitalization, Other)
  Sender: FDA-Public Use
  Company Number: FR-PFIZER INC-2013095522

PATIENT
  Age: 65 Year
  Sex: Male

DRUGS (8)
  1. FLUOROURACILE PFIZER [Suspect]
     Indication: RECTAL CANCER
     Dosage: UNK
     Route: 042
     Dates: start: 20110404, end: 20121119
  2. FLUOROURACILE PFIZER [Suspect]
     Dosage: UNK
     Dates: start: 20130214
  3. FLUOROURACILE PFIZER [Suspect]
     Dosage: UNK
     Dates: start: 20130222
  4. FLUOROURACILE PFIZER [Suspect]
     Dosage: UNK
     Dates: start: 20130226
  5. FLUOROURACILE PFIZER [Suspect]
     Dosage: UNK
     Dates: start: 20130321
  6. AVASTIN [Suspect]
     Indication: RECTAL CANCER
     Dosage: UNK
     Route: 042
     Dates: start: 20110404, end: 20121119
  7. IRINOTECAN MYLAN [Suspect]
     Indication: RECTAL CANCER
     Dosage: UNK
     Route: 042
     Dates: start: 20110404, end: 20121119
  8. FOLINIC ACID [Concomitant]
     Indication: RECTAL CANCER
     Dosage: UNK

REACTIONS (1)
  - Transient ischaemic attack [Recovered/Resolved]
